FAERS Safety Report 7431787-1 (Version None)
Quarter: 2011Q2

REPORT INFORMATION
  Report Type: 
  Country: None (occurrence: None)
  Receive Date: 20110422
  Receipt Date: 20110408
  Transmission Date: 20111010
  Serious: Yes (Life-Threatening, Hospitalization)
  Sender: FDA-Public Use
  Company Number: CA-JNJFOC-20110404512

PATIENT
  Age: 63 Year
  Sex: Female
  Weight: 66 kg

DRUGS (11)
  1. TAZOCIN [Concomitant]
  2. MORPHINE [Concomitant]
  3. PULMICORT [Concomitant]
     Dosage: 2 PUFFS BID
  4. REMICADE [Suspect]
     Indication: RHEUMATOID ARTHRITIS
     Route: 042
  5. IMOVANE [Concomitant]
     Route: 048
  6. ELTROXIN [Concomitant]
     Route: 048
  7. ZANTAC [Concomitant]
  8. ARAVA [Concomitant]
     Route: 048
  9. DICLOFENAC [Concomitant]
  10. BRICANYL [Concomitant]
     Route: 048
  11. OXYCET [Concomitant]

REACTIONS (3)
  - RETROPERITONEAL ABSCESS [None]
  - ACUTE RESPIRATORY DISTRESS SYNDROME [None]
  - ABDOMINAL SEPSIS [None]
